FAERS Safety Report 24782981 (Version 1)
Quarter: 2024Q4

REPORT INFORMATION
  Report Type: Spontaneous
  Country: US (occurrence: None)
  Receive Date: 20241226
  Receipt Date: 20241226
  Transmission Date: 20250115
  Serious: No
  Sender: Public
  Company Number: None

PATIENT
  Age: 27 Year
  Sex: Female

DRUGS (3)
  1. COSENTYX [Suspect]
     Active Substance: SECUKINUMAB
     Indication: Psoriasis
     Dosage: 300/2 MG/ML  EVERY 4 WEEKS SUABCUTANEOUS? ?
     Route: 058
     Dates: start: 20241001
  2. Zotyve cream [Concomitant]
  3. clobetasol Prop [Concomitant]

REACTIONS (2)
  - Skin disorder [None]
  - Psoriasis [None]

NARRATIVE: CASE EVENT DATE: 20241108
